FAERS Safety Report 8765623 (Version 2)
Quarter: 2012Q4

REPORT INFORMATION
  Report Type: 
  Country: CN (occurrence: CN)
  Receive Date: 20120903
  Receipt Date: 20120903
  Transmission Date: 20130627
  Serious: Yes (Hospitalization, Other)
  Sender: FDA-Public Use
  Company Number: PHHY2012CN060052

PATIENT
  Age: 26 None
  Sex: Male

DRUGS (1)
  1. SEBIVO [Suspect]
     Indication: HEPATITIS B
     Dosage: 600 mg, daily
     Route: 048
     Dates: start: 201107, end: 20120618

REACTIONS (20)
  - Alcoholic liver disease [Unknown]
  - Hepatic cancer [Unknown]
  - Weight decreased [Unknown]
  - Rhabdomyolysis [Unknown]
  - Myalgia [Not Recovered/Not Resolved]
  - Asthenia [Unknown]
  - Hypocalcaemia [Unknown]
  - Gait disturbance [Not Recovered/Not Resolved]
  - Nausea [Unknown]
  - Lactic acidosis [Unknown]
  - Abdominal tenderness [Unknown]
  - Myoglobin blood increased [Unknown]
  - Blood creatine phosphokinase increased [Unknown]
  - Vomiting [Unknown]
  - Fatigue [Unknown]
  - Decreased appetite [Unknown]
  - Abdominal distension [Unknown]
  - Hypoalbuminaemia [Unknown]
  - Haematemesis [Unknown]
  - Pain [Recovered/Resolved]
